FAERS Safety Report 9293547 (Version 1)
Quarter: 2013Q2

REPORT INFORMATION
  Report Type: Spontaneous
  Country: GB (occurrence: GB)
  Receive Date: 20130516
  Receipt Date: 20130516
  Transmission Date: 20140414
  Serious: Yes (Other)
  Sender: FDA-Public Use
  Company Number: GB-PFIZER INC-2013146226

PATIENT
  Age: 64 Year
  Sex: Male
  Weight: 68.5 kg

DRUGS (11)
  1. RAMIPRIL [Suspect]
     Dosage: UNK
     Dates: start: 20130208
  2. ATORVASTATIN [Concomitant]
     Dosage: UNK
     Dates: start: 20130102
  3. FULTIUM [Concomitant]
     Dates: start: 20130102
  4. ISOSORBIDE MONONITRATE [Concomitant]
     Dates: start: 20130102, end: 20130422
  5. NIFEDIPINE [Concomitant]
     Dosage: UNK
     Dates: start: 20130102, end: 20130327
  6. PROPRANOLOL [Concomitant]
     Dates: start: 20130102
  7. GLYCERYL TRINITRATE [Concomitant]
     Dates: start: 20130208, end: 20130308
  8. ASPIRIN [Concomitant]
     Dosage: UNK
     Dates: start: 20130225
  9. RANITIDINE [Concomitant]
     Dates: start: 20130225
  10. CO-CODAMOL [Concomitant]
     Dosage: UNK
     Dates: start: 20130410
  11. ELANTAN [Concomitant]
     Indication: PRODUCT USED FOR UNKNOWN INDICATION
     Route: 065
     Dates: start: 20130410

REACTIONS (3)
  - Cough [Recovering/Resolving]
  - Nasal congestion [Recovering/Resolving]
  - Dyspnoea [Recovering/Resolving]
